FAERS Safety Report 16847070 (Version 2)
Quarter: 2020Q1

REPORT INFORMATION
  Report Type: Spontaneous
  Country: US (occurrence: US)
  Receive Date: 20190924
  Receipt Date: 20200129
  Transmission Date: 20200409
  Serious: No
  Sender: FDA-Public Use
  Company Number: US-BIOMARINAP-US-2019-125765

PATIENT
  Age: 47 Year
  Sex: Female
  Weight: 43.54 kg

DRUGS (1)
  1. VIMIZIM [Suspect]
     Active Substance: ELOSULFASE ALFA
     Indication: MUCOPOLYSACCHARIDOSIS IV
     Dosage: UNK, QW
     Route: 042
     Dates: start: 2014

REACTIONS (5)
  - Fall [Unknown]
  - Pain [Unknown]
  - Skeletal injury [Unknown]
  - Spinal pain [Unknown]
  - Pain in extremity [Unknown]
